FAERS Safety Report 9006162 (Version 1)
Quarter: 2013Q1

REPORT INFORMATION
  Report Type: Spontaneous
  Country: US (occurrence: US)
  Receive Date: 20130110
  Receipt Date: 20130110
  Transmission Date: 20140127
  Serious: Yes (Other)
  Sender: FDA-Public Use
  Company Number: US-009507513-0901USA02237

PATIENT
  Age: 10 Year
  Sex: Female
  Weight: 54.43 kg

DRUGS (2)
  1. SINGULAIR [Suspect]
     Indication: ASTHMA
     Dosage: 5 MG, BID
     Route: 048
     Dates: start: 20030101, end: 20080807
  2. SINGULAIR [Suspect]
     Indication: UPPER RESPIRATORY TRACT INFECTION

REACTIONS (9)
  - Decreased appetite [Recovered/Resolved]
  - Anxiety [Recovered/Resolved]
  - Diarrhoea [Recovering/Resolving]
  - Insomnia [Recovering/Resolving]
  - Obsessive thoughts [Recovering/Resolving]
  - Panic attack [Recovered/Resolved]
  - Suicidal ideation [Recovering/Resolving]
  - Thinking abnormal [Recovering/Resolving]
  - Weight decreased [Unknown]
